FAERS Safety Report 5603286-0 (Version None)
Quarter: 2008Q1

REPORT INFORMATION
  Report Type: 
  Country: None (occurrence: None)
  Receive Date: 20080122
  Receipt Date: 20080111
  Transmission Date: 20080703
  Serious: Yes (Death, Life-Threatening, Hospitalization, Disabling)
  Sender: FDA-Public Use
  Company Number: E2020-02114-SPO-GB

PATIENT
  Age: 81 Year
  Sex: Female
  Weight: 42 kg

DRUGS (12)
  1. ARICEPT [Suspect]
     Indication: DEMENTIA
     Dosage: ORAL
     Route: 048
     Dates: start: 20071116
  2. ALENDRONIC ACID (ALENDRONIC ACID) [Concomitant]
  3. AMITRIPTYLINE HYDROCHLORIDE [Concomitant]
  4. ASPIRIN [Concomitant]
  5. CARBAMAZEPINE [Concomitant]
  6. FUROSEMIDE [Concomitant]
  7. IPRATROPIUM BROMIDE [Concomitant]
  8. LANSOPRAZOLE [Concomitant]
  9. PERINDOPRIL TERT-BUTYLAMINE (PERINDOPRIL) [Concomitant]
  10. PREDNISONE [Concomitant]
  11. SALBUTAMOL (SALBUTAMOL) [Concomitant]
  12. SLO-PHYLLIN (AMINOPHYLLINE) [Concomitant]

REACTIONS (4)
  - CARDIAC FAILURE [None]
  - CHRONIC OBSTRUCTIVE PULMONARY DISEASE [None]
  - CONDITION AGGRAVATED [None]
  - SUDDEN DEATH [None]
